FAERS Safety Report 6546656-9 (Version None)
Quarter: 2010Q1

REPORT INFORMATION
  Report Type: 
  Country: None (occurrence: None)
  Receive Date: 20100122
  Receipt Date: 20091216
  Transmission Date: 20100710
  Serious: Yes (Other)
  Sender: FDA-Public Use
  Company Number: US-TYCO HEALTHCARE/MALLINCKRODT-T200901920

PATIENT
  Sex: Male
  Weight: 79.3 kg

DRUGS (3)
  1. BUPRENORPHINE AND NALOXONE FORMULATION B [Suspect]
     Indication: DRUG LEVEL
     Dosage: 8MG/2MG
     Route: 060
     Dates: start: 20091019, end: 20091019
  2. NALTREXONE HYDROCHLORIDE [Suspect]
     Indication: PROPHYLAXIS
     Dosage: 50 MG X 2
     Dates: start: 20091018, end: 20091018
  3. NALTREXONE HYDROCHLORIDE [Suspect]
     Dosage: 50 MG X 2
     Dates: start: 20091019, end: 20091019

REACTIONS (1)
  - SYNCOPE [None]
